FAERS Safety Report 15535915 (Version 4)
Quarter: 2018Q4

REPORT INFORMATION
  Report Type: Spontaneous
  Country: FR (occurrence: FR)
  Receive Date: 20181022
  Receipt Date: 20181120
  Transmission Date: 20190205
  Serious: Yes (Death, Hospitalization, Other)
  Sender: FDA-Public Use
  Company Number: FR-ROCHE-2202771

PATIENT
  Age: 79 Year
  Sex: Female

DRUGS (1)
  1. RIVOTRIL [Suspect]
     Active Substance: CLONAZEPAM
     Indication: CYSTITIS
     Route: 048
     Dates: start: 2008, end: 2008

REACTIONS (10)
  - Intentional product use issue [Unknown]
  - Overdose [Fatal]
  - Ill-defined disorder [Unknown]
  - Drug withdrawal syndrome [Unknown]
  - Fall [Unknown]
  - Completed suicide [Fatal]
  - Drug dependence [Unknown]
  - Off label use [Unknown]
  - Agitation [Recovered/Resolved]
  - Hypomania [Recovered/Resolved]

NARRATIVE: CASE EVENT DATE: 201805
